FAERS Safety Report 6705180-0 (Version None)
Quarter: 2010Q2

REPORT INFORMATION
  Report Type: 
  Country: None (occurrence: None)
  Receive Date: 20100430
  Receipt Date: 20100420
  Transmission Date: 20101027
  Serious: Yes (Other)
  Sender: FDA-Public Use
  Company Number: TR-ABBOTT-10P-161-0639851-00

PATIENT
  Age: 75 Year
  Sex: Male

DRUGS (3)
  1. KLACID MR [Suspect]
     Indication: INFECTION
     Dosage: 2 X 500 MILLIGRAMS X14 TABS
     Route: 048
  2. KLACID MR [Suspect]
     Indication: DENTAL OPERATION
  3. WARFARIN SODIUM [Suspect]
     Indication: DRUG USE FOR UNKNOWN INDICATION
     Route: 048

REACTIONS (1)
  - HAEMATOMA [None]
